FAERS Safety Report 11180401 (Version 1)
Quarter: 2015Q2

REPORT INFORMATION
  Report Type: Spontaneous
  Country: US (occurrence: US)
  Receive Date: 20150611
  Receipt Date: 20150611
  Transmission Date: 20150821
  Serious: No
  Sender: FDA-Public Use
  Company Number: US-TEVA-569310USA

PATIENT
  Sex: Male

DRUGS (6)
  1. MULTIVITAMIN [Concomitant]
     Active Substance: VITAMINS
  2. VITAMIN D [Concomitant]
     Active Substance: CHOLECALCIFEROL
  3. LISINOPRIL. [Concomitant]
     Active Substance: LISINOPRIL
  4. PREDNISONE. [Concomitant]
     Active Substance: PREDNISONE
  5. COPAXONE [Suspect]
     Active Substance: GLATIRAMER ACETATE
     Indication: MULTIPLE SCLEROSIS
     Dosage: 17.1429 MILLIGRAM DAILY;
     Route: 058
     Dates: start: 20140423
  6. AMPYRA [Concomitant]
     Active Substance: DALFAMPRIDINE

REACTIONS (1)
  - Burning sensation [Unknown]
